FAERS Safety Report 4526252-5 (Version None)
Quarter: 2004Q4

REPORT INFORMATION
  Report Type: 
  Country: None (occurrence: None)
  Receive Date: 20041210
  Receipt Date: 20041201
  Transmission Date: 20050328
  Serious: Yes (Other)
  Sender: FDA-Public Use
  Company Number: 2004-12-0011

PATIENT
  Age: 44 Year
  Sex: Male

DRUGS (2)
  1. CELESTONE [Suspect]
     Indication: EAR, NOSE AND THROAT EXAMINATION ABNORMAL
     Dosage: 0.5 MG QD ORAL
     Route: 048
  2. FLIXONASE (FLUTICASONE PROPIONATE) [Concomitant]

REACTIONS (1)
  - ENCEPHALITIS VIRAL [None]
